FAERS Safety Report 19040431 (Version 1)
Quarter: 2021Q1

REPORT INFORMATION
  Report Type: Spontaneous
  Country: US (occurrence: US)
  Receive Date: 20210322
  Receipt Date: 20210322
  Transmission Date: 20210420
  Serious: Yes (Other)
  Sender: FDA-Public Use
  Company Number: US-BIOHAVEN PHARMACEUTICALS-2021BHV00260

PATIENT
  Sex: Female

DRUGS (1)
  1. NURTEC ODT [Suspect]
     Active Substance: RIMEGEPANT SULFATE
     Dates: start: 202010

REACTIONS (5)
  - Stress [Unknown]
  - Swelling face [Unknown]
  - Blood pressure increased [Unknown]
  - Visual impairment [Unknown]
  - Lip swelling [Unknown]
